FAERS Safety Report 20349766 (Version 1)
Quarter: 2022Q1

REPORT INFORMATION
  Report Type: Report from Study
  Country: BG (occurrence: BG)
  Receive Date: 20220119
  Receipt Date: 20220119
  Transmission Date: 20220423
  Serious: Yes (Death, Hospitalization, Other)
  Sender: FDA-Public Use
  Company Number: BG-Zentiva-2021-ZT-011591

PATIENT
  Age: 74 Year
  Sex: Male
  Weight: 60 kg

DRUGS (14)
  1. CARBOPLATIN [Suspect]
     Active Substance: CARBOPLATIN
     Indication: Non-small cell lung cancer
     Route: 042
     Dates: start: 20210127, end: 20210127
  2. CARBOPLATIN [Suspect]
     Active Substance: CARBOPLATIN
     Route: 042
     Dates: end: 20210317
  3. CARBOPLATIN [Suspect]
     Active Substance: CARBOPLATIN
     Route: 042
     Dates: start: 20210222
  4. CARBOPLATIN [Suspect]
     Active Substance: CARBOPLATIN
     Route: 042
     Dates: start: 20210319
  5. CARBOPLATIN [Suspect]
     Active Substance: CARBOPLATIN
     Route: 042
     Dates: start: 20210106, end: 20210106
  6. PEMETREXED [Suspect]
     Active Substance: PEMETREXED
     Indication: Non-small cell lung cancer
     Dosage: 500 MG/SQ.METER A DAY
     Route: 042
     Dates: start: 20210127, end: 20210127
  7. PEMETREXED [Suspect]
     Active Substance: PEMETREXED
     Dosage: 500 MG/SQ.METER A DAY
     Route: 042
     Dates: start: 20210319
  8. PEMETREXED [Suspect]
     Active Substance: PEMETREXED
     Dosage: 500 MG/SQ.METER A DAY
     Route: 042
     Dates: start: 20210106, end: 20210106
  9. PEMETREXED [Suspect]
     Active Substance: PEMETREXED
     Dosage: 500 MG/SQ.METER A DAY
     Route: 042
     Dates: start: 20210222
  10. PEMETREXED [Suspect]
     Active Substance: PEMETREXED
     Dosage: 500 MG/SQ.METER A DAY
     Route: 042
     Dates: end: 20210317
  11. PLACEBO [Suspect]
     Active Substance: UNSPECIFIED INGREDIENT
     Indication: Non-small cell lung cancer
     Dosage: INCMGA00012 OR PLACEBO 375 MG
     Route: 042
     Dates: start: 20210106, end: 20210106
  12. PLACEBO [Suspect]
     Active Substance: UNSPECIFIED INGREDIENT
     Dosage: INCMGA00012 OR PLACEBO 375 MG
     Route: 042
     Dates: end: 20210317
  13. PLACEBO [Suspect]
     Active Substance: UNSPECIFIED INGREDIENT
     Dosage: INCMGA00012 OR PLACEBO 375 MG
     Route: 042
     Dates: start: 20210222, end: 20210222
  14. PLACEBO [Suspect]
     Active Substance: UNSPECIFIED INGREDIENT
     Dosage: INCMGA00012 OR PLACEBO 375 MG
     Route: 042
     Dates: start: 20210319

REACTIONS (4)
  - Sudden death [Fatal]
  - Anaemia [Recovered/Resolved]
  - Neutropenia [Recovered/Resolved]
  - Deep vein thrombosis [Recovered/Resolved]

NARRATIVE: CASE EVENT DATE: 20210304
